FAERS Safety Report 8545430-1 (Version None)
Quarter: 2012Q3

REPORT INFORMATION
  Report Type: 
  Country: None (occurrence: None)
  Receive Date: 20120727
  Receipt Date: 20111103
  Transmission Date: 20120928
  Serious: No
  Sender: FDA-Public Use
  Company Number: US-ASTRAZENECA-2011SE66934

PATIENT
  Age: 30 Year
  Sex: Male

DRUGS (4)
  1. LEXAPRO [Concomitant]
  2. BUSPAR [Concomitant]
  3. SEROQUEL [Suspect]
     Indication: SCHIZOPHRENIA
     Route: 048
  4. KLONOPIN [Concomitant]

REACTIONS (3)
  - DRUG DOSE OMISSION [None]
  - PERSONALITY CHANGE [None]
  - FEELING ABNORMAL [None]
